FAERS Safety Report 12864699 (Version 2)
Quarter: 2017Q1

REPORT INFORMATION
  Report Type: Report from Study
  Country: JP (occurrence: JP)
  Receive Date: 20161020
  Receipt Date: 20170130
  Transmission Date: 20170428
  Serious: Yes (Hospitalization, Other)
  Sender: FDA-Public Use
  Company Number: JP-SHIRE-JP201614565

PATIENT
  Age: 81 Year
  Sex: Male

DRUGS (8)
  1. BAYASPIRIN [Concomitant]
     Active Substance: ASPIRIN
     Indication: THROMBOSIS PROPHYLAXIS
     Dosage: UNK, UNKNOWN
     Route: 048
     Dates: start: 20151224
  2. URSO [Concomitant]
     Active Substance: URSODIOL
     Indication: PRODUCT USED FOR UNKNOWN INDICATION
     Dosage: UNK, UNKNOWN
     Route: 048
  3. 422 (ANAGRELIDE) [Suspect]
     Active Substance: ANAGRELIDE
     Dosage: 1.5 MG/DAY
     Route: 048
     Dates: start: 20151224, end: 20160105
  4. DOGMATIL [Concomitant]
     Active Substance: SULPIRIDE
     Indication: DECREASED APPETITE
     Dosage: UNK, UNKNOWN
     Route: 048
     Dates: end: 20160502
  5. 422 (ANAGRELIDE) [Suspect]
     Active Substance: ANAGRELIDE
     Indication: MYELOPROLIFERATIVE NEOPLASM
     Dosage: 2 MG/DAY
     Route: 048
     Dates: start: 20160106
  6. 422 (ANAGRELIDE) [Suspect]
     Active Substance: ANAGRELIDE
     Dosage: 1 MG/DAY
     Route: 048
     Dates: start: 20151218, end: 20151223
  7. TAKECAB [Concomitant]
     Active Substance: VONOPRAZAN FUMURATE
     Indication: PROPHYLAXIS AGAINST GASTROINTESTINAL ULCER
     Dosage: UNK, UNKNOWN
     Route: 048
     Dates: start: 20160301, end: 20160502
  8. MAGLAX [Concomitant]
     Active Substance: MAGNESIUM OXIDE
     Indication: DRUG THERAPY
     Dosage: UNK, UNKNOWN
     Route: 048

REACTIONS (5)
  - Pneumonia [Recovered/Resolved]
  - Nausea [Recovered/Resolved]
  - Back pain [Not Recovered/Not Resolved]
  - C-reactive protein increased [Recovered/Resolved]
  - Decreased appetite [Recovered/Resolved]

NARRATIVE: CASE EVENT DATE: 20160106
